FAERS Safety Report 9238139 (Version 1)
Quarter: 2013Q1

REPORT INFORMATION
  Report Type: Spontaneous
  Country: US (occurrence: None)
  Receive Date: 20121106
  Receipt Date: 20121106
  Transmission Date: 20140127
  Serious: No
  Sender: FDA-Public Use
  Company Number: 1000037864

PATIENT
  Age: 54 Year
  Sex: Male

DRUGS (7)
  1. DALIRESP [Suspect]
     Indication: LUNG ABSCESS
     Dosage: 500 MCG (500 MCG, 1 IN 1 D, ORAL
     Route: 048
     Dates: start: 20120730, end: 20120810
  2. UNISOM [Suspect]
     Indication: INSOMNIA
     Dates: start: 20120809
  3. XOPENEX (LEVOSALBUTAMOL HYDROCHLORIDE (LEVOSALBUTAMOL HYDROCHLORIDE) [Concomitant]
  4. ASMANEX [Concomitant]
  5. SPIRIVA (TIOTROPIUM BROMIDE) (TIOTROPIUM BROMIDE) [Concomitant]
  6. SINGULAIR [Concomitant]
  7. PREDNISONE (PREDNISONE) (PREDNISONE) [Concomitant]

REACTIONS (7)
  - Back pain [None]
  - Dyspepsia [None]
  - Arthralgia [None]
  - Insomnia [None]
  - Anxiety [None]
  - Feeling abnormal [None]
  - Off label use [None]
